FAERS Safety Report 17757975 (Version 1)
Quarter: 2020Q2

REPORT INFORMATION
  Report Type: Spontaneous
  Country: DE (occurrence: DE)
  Receive Date: 20200507
  Receipt Date: 20200507
  Transmission Date: 20200714
  Serious: Yes (Hospitalization, Other)
  Sender: FDA-Public Use
  Company Number: PHHY2019DE109686

PATIENT
  Sex: Female
  Weight: 81 kg

DRUGS (7)
  1. MUNALEA [Suspect]
     Active Substance: DESOGESTREL\ETHINYL ESTRADIOL
     Indication: HORMONAL CONTRACEPTION
     Dosage: UNK
     Route: 065
     Dates: start: 2004, end: 2005
  2. XARELTO [Concomitant]
     Active Substance: RIVAROXABAN
     Indication: PRODUCT USED FOR UNKNOWN INDICATION
     Dosage: 30 MG, QD
     Route: 065
     Dates: end: 20190118
  3. DEXAMETHASONE. [Suspect]
     Active Substance: DEXAMETHASONE
     Dosage: 0.5 MG
     Route: 048
     Dates: start: 201507
  4. ELIQUIS [Concomitant]
     Active Substance: APIXABAN
     Indication: PRODUCT USED FOR UNKNOWN INDICATION
     Dosage: UNK (2X5MG)
     Route: 065
  5. L-THYROXIN 50 - 1 A PHARMA [Suspect]
     Active Substance: LEVOTHYROXINE
     Indication: THROMBOSIS
     Dosage: UNK
     Route: 065
     Dates: start: 201505
  6. MUNALEA [Suspect]
     Active Substance: DESOGESTREL\ETHINYL ESTRADIOL
     Dosage: UNK
     Route: 048
     Dates: start: 201505, end: 20181227
  7. DEXAMETHASONE. [Suspect]
     Active Substance: DEXAMETHASONE
     Indication: COAGULOPATHY
     Dosage: UNK
     Route: 048

REACTIONS (2)
  - Muscular weakness [Unknown]
  - Deep vein thrombosis [Unknown]

NARRATIVE: CASE EVENT DATE: 20181220
